FAERS Safety Report 19157984 (Version 1)
Quarter: 2021Q2

REPORT INFORMATION
  Report Type: Spontaneous
  Country: US (occurrence: US)
  Receive Date: 20210419
  Receipt Date: 20210419
  Transmission Date: 20210717
  Serious: No
  Sender: FDA-Public Use
  Company Number: None

PATIENT
  Age: 64 Year
  Sex: Female
  Weight: 57 kg

DRUGS (7)
  1. CEFDINIR 300MG [Concomitant]
     Active Substance: CEFDINIR
     Dates: start: 20210323
  2. TRIAMCINOLONE 0.1% OINTMENT [Concomitant]
     Active Substance: TRIAMCINOLONE ACETONIDE
     Dates: start: 20210317
  3. ANASTRAZOLE 1MG [Concomitant]
     Active Substance: ANASTROZOLE
     Dates: start: 20210117
  4. VERZENIO [Suspect]
     Active Substance: ABEMACICLIB
     Indication: BREAST CANCER
     Route: 048
     Dates: start: 20210119, end: 20210416
  5. BENZONATATE 200MG [Concomitant]
     Active Substance: BENZONATATE
     Dates: start: 20210323
  6. LEVOTHYROXINE 0.088MG [Concomitant]
     Dates: start: 20210107
  7. UREA 45% CREAM [Concomitant]
     Dates: start: 20210106

REACTIONS (3)
  - Abdominal pain upper [None]
  - Loss of personal independence in daily activities [None]
  - Diarrhoea [None]

NARRATIVE: CASE EVENT DATE: 20210405
